FAERS Safety Report 8950523 (Version 1)
Quarter: 2012Q4

REPORT INFORMATION
  Report Type: 
  Country: US (occurrence: US)
  Receive Date: 20121207
  Receipt Date: 20121207
  Transmission Date: 20130627
  Serious: Yes (Disabling, Other)
  Sender: FDA-Public Use
  Company Number: US-JNJFOC-20121014554

PATIENT
  Age: 31 Year
  Sex: Female
  Weight: 115.21 kg

DRUGS (2)
  1. REMICADE [Suspect]
     Indication: CROHN^S DISEASE
     Route: 042
  2. REMICADE [Suspect]
     Indication: CROHN^S DISEASE
     Route: 042

REACTIONS (8)
  - Pyoderma gangrenosum [Unknown]
  - Uveitis [Unknown]
  - Episcleritis [Unknown]
  - Pyoderma [Recovering/Resolving]
  - Condition aggravated [Recovering/Resolving]
  - Haematochezia [Unknown]
  - Drug ineffective [Unknown]
  - Rash erythematous [Unknown]
